FAERS Safety Report 9008704 (Version 3)
Quarter: 2013Q1

REPORT INFORMATION
  Report Type: Report from Study
  Country: JP (occurrence: JP)
  Receive Date: 20130111
  Receipt Date: 20130122
  Transmission Date: 20140127
  Serious: Yes (Hospitalization, Other)
  Sender: FDA-Public Use
  Company Number: JP-PFIZER INC-2005168568

PATIENT
  Age: 59 Year
  Sex: Male
  Weight: 56 kg

DRUGS (27)
  1. MYLOTARG [Suspect]
     Indication: ACUTE MYELOID LEUKAEMIA RECURRENT
     Dosage: 16 MG (9 MG/M2), 1X/DAY
     Route: 041
     Dates: start: 20051130, end: 20051130
  2. VFEND [Suspect]
     Indication: FUNGAL INFECTION
     Dosage: 400 MG, 1X/DAY
     Route: 041
     Dates: start: 20051207, end: 20051209
  3. FUNGUARD [Concomitant]
     Route: 042
     Dates: start: 20051125, end: 20051207
  4. FUNGUARD [Concomitant]
     Dosage: UNK
     Route: 041
     Dates: start: 20051119
  5. TIENAM [Concomitant]
     Dosage: UNK
     Route: 042
     Dates: start: 20051125, end: 20051207
  6. TIENAM [Concomitant]
     Dosage: UNK
     Route: 041
     Dates: start: 20051214
  7. MIRIMOSTIM [Concomitant]
     Route: 042
     Dates: start: 20051207, end: 20051217
  8. STRONG NEO-MINOPHAGEN C [Concomitant]
     Dosage: UNK
     Route: 042
     Dates: start: 20051127, end: 20051209
  9. STRONG NEO-MINOPHAGEN C [Concomitant]
     Dosage: UNK
     Route: 041
     Dates: start: 20051125
  10. CARBENIN [Concomitant]
     Dosage: UNK
     Route: 041
     Dates: start: 20051119, end: 20051127
  11. CARBENIN [Concomitant]
     Dosage: UNK
     Route: 041
     Dates: start: 20051207, end: 20051210
  12. HABEKACIN [Concomitant]
     Dosage: UNK
     Route: 041
     Dates: start: 20051207, end: 20051209
  13. ZOVIRAX [Concomitant]
     Dosage: UNK
     Route: 041
     Dates: start: 20060124, end: 20060131
  14. ALPROSTADIL [Concomitant]
     Dosage: UNK
     Route: 042
     Dates: start: 20051202
  15. AMIKACIN SULFATE [Concomitant]
     Dosage: UNK
     Route: 041
     Dates: start: 20051119, end: 20051207
  16. FUNGIZONE [Concomitant]
     Dosage: UNK
     Route: 041
     Dates: start: 20060105
  17. DALACIN-S [Concomitant]
     Dosage: UNK
     Route: 041
     Dates: start: 20060121, end: 20060131
  18. GASTER [Concomitant]
     Dosage: UNK
     Route: 042
     Dates: start: 20051127
  19. ITRIZOLE [Concomitant]
     Dosage: UNK
     Route: 048
     Dates: start: 20051127
  20. MEROPEN [Concomitant]
     Dosage: UNK
     Route: 041
     Dates: start: 20051127, end: 20051204
  21. MINOMYCIN [Concomitant]
     Dosage: UNK
     Route: 041
     Dates: start: 20051119, end: 20051207
  22. BAKTAR [Concomitant]
     Dosage: UNK
     Route: 048
     Dates: start: 20051127
  23. TARGOCID [Concomitant]
     Dosage: UNK
     Route: 041
     Dates: start: 20051224
  24. TARGOCID [Concomitant]
     Dosage: UNK
     Route: 041
     Dates: start: 20051127, end: 20051222
  25. OZEX [Concomitant]
     Dosage: UNK
     Route: 048
     Dates: start: 20051127
  26. URSO [Concomitant]
     Dosage: UNK
     Route: 048
     Dates: start: 20051127
  27. VANCOMYCIN HYDROCHLORIDE [Concomitant]
     Dosage: UNK
     Route: 041
     Dates: start: 20051222, end: 20051224

REACTIONS (3)
  - Venoocclusive liver disease [Recovered/Resolved]
  - Interstitial lung disease [Recovered/Resolved]
  - Drug-induced liver injury [Recovering/Resolving]
